FAERS Safety Report 22343424 (Version 3)
Quarter: 2023Q4

REPORT INFORMATION
  Report Type: Spontaneous
  Country: RU (occurrence: None)
  Receive Date: 20230519
  Receipt Date: 20231120
  Transmission Date: 20240109
  Serious: Yes (Other)
  Sender: FDA-Public Use
  Company Number: RU-ROCHE-3351119

PATIENT
  Age: 71 Year
  Sex: Female

DRUGS (7)
  1. TRASTUZUMAB [Suspect]
     Active Substance: TRASTUZUMAB
     Indication: Breast cancer
     Route: 065
  2. PERTUZUMAB [Suspect]
     Active Substance: PERTUZUMAB
     Indication: Breast cancer
     Route: 065
  3. ADO-TRASTUZUMAB EMTANSINE [Suspect]
     Active Substance: ADO-TRASTUZUMAB EMTANSINE
     Indication: Breast cancer
     Route: 065
  4. CAPECITABINE [Suspect]
     Active Substance: CAPECITABINE
     Indication: Breast cancer
     Route: 048
  5. LAPATINIB [Suspect]
     Active Substance: LAPATINIB
     Indication: Breast cancer
     Route: 065
  6. DOCETAXEL [Suspect]
     Active Substance: DOCETAXEL\DOCETAXEL ANHYDROUS
     Indication: Breast cancer
     Route: 065
  7. NAVELBINE [Suspect]
     Active Substance: VINORELBINE TARTRATE
     Indication: Breast cancer
     Dosage: 110 MG ORALLY ON DAYS 1, 8, 15 AND THEN 140 MG WEEKLY FROM 02/JUN/2023
     Route: 048

REACTIONS (6)
  - Diarrhoea [Unknown]
  - Metastases to skin [Unknown]
  - Atrial fibrillation [Unknown]
  - Asthenia [Unknown]
  - Weight decreased [Unknown]
  - Decreased appetite [Unknown]
